FAERS Safety Report 8936660 (Version 1)
Quarter: 2012Q4

REPORT INFORMATION
  Report Type: 
  Country: MT (occurrence: MT)
  Receive Date: 20121130
  Receipt Date: 20121130
  Transmission Date: 20130627
  Serious: Yes (Hospitalization, Other)
  Sender: FDA-Public Use
  Company Number: MT-ROCHE-1162483

PATIENT
  Sex: Female

DRUGS (1)
  1. XOLAIR [Suspect]
     Indication: ASTHMA
     Route: 058
     Dates: start: 2012

REACTIONS (1)
  - Asthma [Not Recovered/Not Resolved]
